FAERS Safety Report 16841855 (Version 2)
Quarter: 2019Q4

REPORT INFORMATION
  Report Type: Spontaneous
  Country: US (occurrence: US)
  Receive Date: 20190923
  Receipt Date: 20191025
  Transmission Date: 20200122
  Serious: Yes (Hospitalization, Other)
  Sender: FDA-Public Use
  Company Number: PHEH2019US038785

PATIENT
  Age: 57 Year
  Sex: Male

DRUGS (8)
  1. VIDAZA [Suspect]
     Active Substance: AZACITIDINE
     Indication: FMS-LIKE TYROSINE KINASE 3 POSITIVE
  2. CYTARABINE. [Suspect]
     Active Substance: CYTARABINE
     Indication: FMS-LIKE TYROSINE KINASE 3 POSITIVE
  3. RYDAPT [Suspect]
     Active Substance: MIDOSTAURIN
     Indication: ACUTE MYELOID LEUKAEMIA
     Dosage: UNK
     Route: 065
     Dates: start: 201902
  4. RYDAPT [Suspect]
     Active Substance: MIDOSTAURIN
     Indication: FMS-LIKE TYROSINE KINASE 3 POSITIVE
  5. VIDAZA [Suspect]
     Active Substance: AZACITIDINE
     Indication: ACUTE MYELOID LEUKAEMIA
     Dosage: UNK
     Route: 065
     Dates: start: 20190325
  6. GILTERITINIB [Suspect]
     Active Substance: GILTERITINIB
     Indication: ACUTE MYELOID LEUKAEMIA
     Dosage: 40 MG, QD (3 TABLETS)
     Route: 065
     Dates: start: 20190731, end: 20190903
  7. GILTERITINIB [Suspect]
     Active Substance: GILTERITINIB
     Indication: FMS-LIKE TYROSINE KINASE 3 POSITIVE
  8. CYTARABINE. [Suspect]
     Active Substance: CYTARABINE
     Indication: ACUTE MYELOID LEUKAEMIA
     Dosage: UNK
     Route: 065
     Dates: start: 20190723

REACTIONS (7)
  - Renal failure [Unknown]
  - Bacterial infection [Recovered/Resolved]
  - Hepatic failure [Unknown]
  - Acute myeloid leukaemia recurrent [Unknown]
  - Hepatic enzyme increased [Recovered/Resolved]
  - Fall [Recovered/Resolved]
  - Infection [Unknown]

NARRATIVE: CASE EVENT DATE: 201902
